FAERS Safety Report 7771631-6 (Version None)
Quarter: 2011Q3

REPORT INFORMATION
  Report Type: 
  Country: None (occurrence: None)
  Receive Date: 20110922
  Receipt Date: 20100412
  Transmission Date: 20111222
  Serious: No
  Sender: FDA-Public Use
  Company Number: US-ASTRAZENECA-2009UW15527

PATIENT
  Age: 10879 Day
  Sex: Female
  Weight: 115.3 kg

DRUGS (26)
  1. ALBUTEROL [Concomitant]
     Dosage: VIA NEB PRN
     Dates: start: 20090316
  2. GEODON [Concomitant]
     Dates: start: 20090316
  3. ATIVAN [Concomitant]
     Indication: PANIC ATTACK
     Dates: start: 20060818
  4. LITHIUM CARBONATE [Concomitant]
     Dates: start: 20061219
  5. KLONOPIN [Concomitant]
     Dates: start: 20090316
  6. WELLBUTRIN [Concomitant]
     Dosage: 150-300 MG
     Dates: start: 20061205
  7. CYMBALTA [Concomitant]
     Dates: start: 20070806
  8. DEPAKOTE [Concomitant]
     Dates: start: 20090316
  9. DEPAKOTE [Concomitant]
     Dates: start: 20070613
  10. IMIPRAMINE [Concomitant]
     Dates: start: 20090316
  11. RISPERDAL [Concomitant]
     Dates: start: 20070905
  12. VICODIN [Concomitant]
     Dosage: 5/500 1 TAB PO Q 4-6 HRS PRN
     Dates: start: 20070316
  13. ZOLOFT [Concomitant]
     Dosage: 50 MG 1/2 TAB QD, 7 DAYS THEN 1 TAB QD THERAFTER
     Dates: start: 20060818
  14. MEDROL [Concomitant]
     Dates: start: 20090316
  15. METHOCARBAMOL [Concomitant]
     Dates: start: 20070905
  16. TOPAMAX [Concomitant]
     Dosage: 25-100 MG
     Dates: start: 20070912
  17. AMITRIPTYLINE HCL [Concomitant]
     Dates: start: 20061127
  18. ATIVAN [Concomitant]
     Dates: start: 20061205
  19. CYMBALTA [Concomitant]
     Dates: start: 20090316
  20. FLUVOXAMINE [Concomitant]
     Dates: start: 20090316
  21. SEROQUEL [Suspect]
     Route: 048
     Dates: start: 20061228
  22. EFFEXOR [Concomitant]
     Dates: start: 20061127
  23. NAPROXEN [Concomitant]
     Dates: start: 20061229
  24. NEXIUM [Concomitant]
     Dates: start: 20070321
  25. MERIDIA [Concomitant]
     Dates: start: 20070912
  26. KLONOPIN [Concomitant]
     Dosage: 0.5 MG TID 2 WEEKS THEN TAPER TO BID
     Dates: start: 20070228

REACTIONS (5)
  - OEDEMA [None]
  - INSULIN RESISTANCE [None]
  - DRUG HYPERSENSITIVITY [None]
  - DIABETES MELLITUS [None]
  - GLUCOSE TOLERANCE IMPAIRED [None]
